FAERS Safety Report 8905611 (Version 9)
Quarter: 2013Q4

REPORT INFORMATION
  Report Type: Report from Study
  Country: BR (occurrence: BR)
  Receive Date: 20121111
  Receipt Date: 20131118
  Transmission Date: 20140711
  Serious: Yes (Hospitalization)
  Sender: FDA-Public Use
  Company Number: PHHO2012BR016084

PATIENT
  Age: 58 Year
  Sex: Male
  Weight: 90.5 kg

DRUGS (18)
  1. AMN107 [Suspect]
     Indication: CHRONIC MYELOID LEUKAEMIA
     Dosage: 800 MG, UNK
     Route: 048
     Dates: start: 20080818, end: 20121108
  2. AMN107 [Suspect]
     Dosage: 800 MG
     Route: 048
     Dates: start: 20121126, end: 20130104
  3. AMN107 [Suspect]
     Dosage: 800 MG
     Route: 048
     Dates: start: 20130117, end: 20130321
  4. ENALAPRIL [Concomitant]
     Indication: HYPERTENSION
     Dosage: 5 MG, TID
     Route: 048
     Dates: start: 20100909
  5. HYDROCHLOROTHIAZIDE [Concomitant]
     Indication: HYPERTENSION
     Dosage: 25 MG, QD
     Route: 048
     Dates: start: 20090908
  6. METFORMIN [Concomitant]
     Indication: DIABETES MELLITUS
     Dosage: 850 MG, TID
     Route: 048
     Dates: start: 20090130
  7. AMLODIPINE [Concomitant]
     Indication: HYPERTENSION
     Dosage: 5 MG, BID
     Route: 048
     Dates: start: 201107
  8. AAS [Concomitant]
     Indication: ACUTE MYOCARDIAL INFARCTION
     Dosage: 100 MG, QD
     Route: 048
     Dates: start: 20121102
  9. SIMVASTATIN [Concomitant]
     Indication: CARDIAC FAILURE
     Dosage: 20 MG, QD
     Route: 048
  10. MONOCORDIL [Concomitant]
     Indication: CARDIAC FAILURE
     Dosage: 20 MG, TID
     Route: 048
  11. AMIODARONE [Concomitant]
     Indication: CARDIAC FAILURE
     Dosage: 200 MG, QD
     Route: 048
  12. FUROSEMIDE [Concomitant]
     Indication: CARDIAC FAILURE
     Dosage: 40 MG, QD
     Route: 048
  13. ALDACTONE [Concomitant]
     Indication: CARDIAC FAILURE
     Dosage: 25 MG, QD
     Route: 048
  14. CLOPIDOGREL [Concomitant]
     Indication: ACUTE MYOCARDIAL INFARCTION
     Dosage: 75 MG, QD
     Route: 048
     Dates: start: 20121102, end: 20130310
  15. OMEPRAZOLE [Concomitant]
     Indication: PROPHYLAXIS AGAINST GASTROINTESTINAL ULCER
     Dosage: 20 MG, QD
     Route: 048
     Dates: start: 20121102
  16. CARVEDILOL [Concomitant]
     Indication: ACUTE MYOCARDIAL INFARCTION
     Dosage: 3.125 MG, BID
     Route: 048
     Dates: start: 20121102, end: 20130114
  17. CARVEDILOL [Concomitant]
     Dosage: 25 MG, BID
     Route: 048
     Dates: start: 20130115
  18. SODIUM PHOSPHATE W/POTASSIUM PHOSPHATE MONOB. [Concomitant]
     Indication: CARDIAC FAILURE
     Dosage: 1 DF, BID
     Route: 048
     Dates: start: 20101209

REACTIONS (3)
  - Cerebrovascular accident [Recovered/Resolved with Sequelae]
  - Cardiac failure [Recovered/Resolved with Sequelae]
  - Acute myocardial infarction [Recovered/Resolved with Sequelae]
